FAERS Safety Report 5886522-5 (Version None)
Quarter: 2008Q3

REPORT INFORMATION
  Report Type: 
  Country: None (occurrence: None)
  Receive Date: 20080818
  Receipt Date: 20080604
  Transmission Date: 20090109
  Serious: No
  Sender: FDA-Public Use
  Company Number: 20074292

PATIENT

DRUGS (9)
  1. LIORESAL [Suspect]
     Indication: MUSCLE SPASTICITY
     Dosage: 250 MCG, DAILY, INTRATHECAL
     Route: 037
  2. CYPROHEPTADINE HCL [Concomitant]
  3. BACLOFEN [Concomitant]
  4. CARNITOR [Concomitant]
  5. COENZYME Q10 [Concomitant]
  6. DIAZEPAM [Concomitant]
  7. FELBATOL [Concomitant]
  8. MULTIVITS [Concomitant]
  9. HYOSCYMINE [Concomitant]

REACTIONS (8)
  - AGITATION [None]
  - CONVULSION [None]
  - DRUG INEFFECTIVE [None]
  - OVERDOSE [None]
  - PAIN [None]
  - SOMNOLENCE [None]
  - URINARY RETENTION [None]
  - WITHDRAWAL SYNDROME [None]
